FAERS Safety Report 9855380 (Version 2)
Quarter: 2014Q1

REPORT INFORMATION
  Report Type: Spontaneous
  Country: US (occurrence: US)
  Receive Date: 20140130
  Receipt Date: 20140214
  Transmission Date: 20141002
  Serious: Yes (Death, Life-Threatening, Hospitalization, Disabling)
  Sender: FDA-Public Use
  Company Number: US-JNJFOC-20140114168

PATIENT
  Age: 83 Year
  Sex: Female
  Weight: 69.85 kg

DRUGS (20)
  1. XARELTO [Suspect]
     Indication: CEREBROVASCULAR ACCIDENT PROPHYLAXIS
     Route: 048
     Dates: start: 20131217, end: 20140118
  2. XARELTO [Suspect]
     Indication: CEREBROVASCULAR ACCIDENT PROPHYLAXIS
     Route: 048
     Dates: start: 20130407, end: 201312
  3. XARELTO [Suspect]
     Indication: ATRIAL FIBRILLATION
     Route: 048
     Dates: start: 20131217, end: 20140118
  4. XARELTO [Suspect]
     Indication: ATRIAL FIBRILLATION
     Route: 048
     Dates: start: 20130407, end: 201312
  5. SOTALOL [Concomitant]
     Indication: ATRIAL FIBRILLATION
     Route: 048
     Dates: start: 20130405
  6. LOSARTAN [Concomitant]
     Route: 048
     Dates: start: 20130406
  7. LASIX [Concomitant]
     Route: 048
     Dates: start: 20130408
  8. MOMETASONE FUROATE [Concomitant]
     Dosage: 1 PUFF
     Route: 055
     Dates: start: 20130408
  9. BISACODYL [Concomitant]
     Route: 054
     Dates: start: 20130407
  10. GUAIFENESIN [Concomitant]
     Dosage: Q4H ,PRN
     Route: 048
     Dates: start: 20130407
  11. PROTONIX [Concomitant]
     Dosage: Q4H ,PRN
     Route: 048
     Dates: start: 20130405
  12. ALLEGRA [Concomitant]
     Route: 048
  13. ALLEGRA [Concomitant]
     Dosage: Q4H ,PRN
     Route: 048
     Dates: start: 20130405
  14. MOXIFLOXACIN [Concomitant]
     Dosage: 1 PUFF TWICE A DAY
     Route: 048
     Dates: start: 20130404
  15. TEMAZEPAM [Concomitant]
     Dosage: Q4H ,PRN
     Route: 048
     Dates: start: 20130406
  16. IPRATROPIUM [Concomitant]
     Dosage: Q4H ,PRN
     Route: 055
     Dates: start: 20130404
  17. K-DUR [Concomitant]
     Route: 065
     Dates: start: 20130404
  18. MIRALAX [Concomitant]
     Route: 048
     Dates: start: 20130406
  19. ATORVASTATIN CALCIUM [Concomitant]
     Route: 048
     Dates: start: 20131217
  20. DEXILANT [Concomitant]
     Indication: GASTROOESOPHAGEAL REFLUX DISEASE
     Route: 065

REACTIONS (8)
  - Cerebrovascular accident [Fatal]
  - Cardiac failure congestive [Recovering/Resolving]
  - Pneumonia aspiration [Unknown]
  - Hypernatraemia [Unknown]
  - Cough [Unknown]
  - Back pain [Unknown]
  - Treatment failure [Unknown]
  - Hypokalaemia [Unknown]
